FAERS Safety Report 9792832 (Version 6)
Quarter: 2015Q1

REPORT INFORMATION
  Report Type: Report from Study
  Country: US (occurrence: US)
  Receive Date: 20140102
  Receipt Date: 20150325
  Transmission Date: 20150721
  Serious: Yes (Other)
  Sender: FDA-Public Use
  Company Number: US-SANOFI-AVENTIS-2013SA041703

PATIENT
  Age: 55 Year
  Sex: Female

DRUGS (6)
  1. MUCINEX [Concomitant]
     Active Substance: GUAIFENESIN
     Indication: NASOPHARYNGITIS
  2. AMPYRA [Concomitant]
     Active Substance: DALFAMPRIDINE
     Dates: start: 20130424
  3. AUBAGIO [Suspect]
     Active Substance: TERIFLUNOMIDE
     Indication: MULTIPLE SCLEROSIS
     Route: 065
     Dates: start: 20131107, end: 20141001
  4. AUBAGIO [Suspect]
     Active Substance: TERIFLUNOMIDE
     Indication: MULTIPLE SCLEROSIS
     Route: 065
     Dates: start: 20141002
  5. MUCINEX [Concomitant]
     Active Substance: GUAIFENESIN
     Indication: COUGH
  6. AUBAGIO [Suspect]
     Active Substance: TERIFLUNOMIDE
     Indication: MULTIPLE SCLEROSIS
     Route: 065
     Dates: start: 20130307, end: 201311

REACTIONS (17)
  - Paraesthesia [Recovered/Resolved]
  - Muscle spasms [Unknown]
  - Peripheral swelling [Unknown]
  - Drug ineffective [Unknown]
  - Vision blurred [Recovered/Resolved]
  - Back pain [Recovered/Resolved]
  - Influenza like illness [Recovered/Resolved]
  - Multiple sclerosis relapse [Unknown]
  - Stress [Unknown]
  - Hypoaesthesia [Recovered/Resolved]
  - Respiratory disorder [Recovered/Resolved]
  - Dizziness [Unknown]
  - Urinary incontinence [Recovered/Resolved]
  - Insomnia [Unknown]
  - Paralysis [Unknown]
  - Pollakiuria [Recovered/Resolved]
  - Nasopharyngitis [Recovered/Resolved]
